FAERS Safety Report 20195058 (Version 2)
Quarter: 2022Q2

REPORT INFORMATION
  Report Type: Report from Study
  Country: US (occurrence: US)
  Receive Date: 20211216
  Receipt Date: 20220419
  Transmission Date: 20220720
  Serious: Yes (Hospitalization)
  Sender: FDA-Public Use
  Company Number: US-JNJFOC-20211220548

PATIENT
  Age: 73 Year
  Sex: Female

DRUGS (5)
  1. DARATUMUMAB [Suspect]
     Active Substance: DARATUMUMAB
     Indication: Plasma cell myeloma
     Dosage: CYCLE 13?(LAST DOSE BEFORE THE EVENT WAS ON 30-NOV-2022)
     Route: 042
     Dates: start: 20211105
  2. IXAZOMIB [Suspect]
     Active Substance: IXAZOMIB
     Indication: Plasma cell myeloma
     Dosage: CYCLE 13?(LAST DOSE BEFORE THE EVENT WAS ON 30-NOV-2022)
     Route: 048
     Dates: start: 20211105
  3. IXAZOMIB [Suspect]
     Active Substance: IXAZOMIB
     Route: 048
  4. LENALIDOMIDE [Suspect]
     Active Substance: LENALIDOMIDE
     Indication: Plasma cell myeloma
     Dosage: CYCLE 13?(LAST DOSE BEFORE THE EVENT WAS ON 05-DEC-2022)
     Route: 048
     Dates: start: 20211105
  5. DEXAMETHASONE [Suspect]
     Active Substance: DEXAMETHASONE
     Indication: Plasma cell myeloma
     Dosage: CYCLE 13?(LAST DOSE BEFORE THE EVENT WAS ON 30-NOV-2022)
     Route: 048
     Dates: start: 20211105

REACTIONS (1)
  - Pneumonia [Not Recovered/Not Resolved]

NARRATIVE: CASE EVENT DATE: 20211206
